FAERS Safety Report 16960541 (Version 1)
Quarter: 2019Q4

REPORT INFORMATION
  Report Type: Spontaneous
  Country: BR (occurrence: BR)
  Receive Date: 20191025
  Receipt Date: 20191025
  Transmission Date: 20200122
  Serious: Yes (Hospitalization, Other)
  Sender: FDA-Public Use
  Company Number: BR-AMGEN-BRASP2019174694

PATIENT
  Age: 77 Year
  Sex: Female
  Weight: 52 kg

DRUGS (6)
  1. RIDAURA [Concomitant]
     Active Substance: AURANOFIN
  2. ADDERA D3 [Concomitant]
     Active Substance: CHOLECALCIFEROL
  3. AZUKON [Concomitant]
     Active Substance: GLICLAZIDE
  4. GLIFAGE [Concomitant]
     Active Substance: METFORMIN HYDROCHLORIDE
     Indication: DIABETES MELLITUS
  5. PROLIA [Suspect]
     Active Substance: DENOSUMAB
     Indication: OSTEOPOROSIS
     Dosage: UNK, Q6MO
     Route: 058
     Dates: start: 2017
  6. METHOTREXATE. [Concomitant]
     Active Substance: METHOTREXATE
     Indication: ARTHRITIS
     Dosage: FOUR CAPSULES, QWK

REACTIONS (6)
  - Scleroderma renal crisis [Recovered/Resolved]
  - Gait disturbance [Unknown]
  - Pain [Not Recovered/Not Resolved]
  - Fall [Unknown]
  - Upper limb fracture [Recovered/Resolved]
  - Insomnia [Unknown]

NARRATIVE: CASE EVENT DATE: 2017
